FAERS Safety Report 12815880 (Version 1)
Quarter: 2016Q4

REPORT INFORMATION
  Report Type: Spontaneous
  Country: US (occurrence: US)
  Receive Date: 20161006
  Receipt Date: 20161006
  Transmission Date: 20170207
  Serious: No
  Sender: FDA-Public Use
  Company Number: None

PATIENT
  Sex: Male

DRUGS (1)
  1. VIVITROL [Suspect]
     Active Substance: NALTREXONE
     Indication: DRUG DEPENDENCE
     Dates: start: 20160519, end: 20160913

REACTIONS (5)
  - Hypothyroidism [None]
  - Condition aggravated [None]
  - Weight increased [None]
  - Liver disorder [None]
  - Therapy cessation [None]
